FAERS Safety Report 10247958 (Version 1)
Quarter: 2014Q2

REPORT INFORMATION
  Report Type: Spontaneous
  Country: US (occurrence: US)
  Receive Date: 20140619
  Receipt Date: 20140619
  Transmission Date: 20141212
  Serious: No
  Sender: FDA-Public Use
  Company Number: US-009507513-1406USA008405

PATIENT
  Age: 41 Year
  Sex: Female

DRUGS (2)
  1. NUVARING [Suspect]
     Indication: CONTRACEPTION
     Dosage: 3 WEEKS IN, 1 WEEK OUT, 1 RING
     Route: 067
     Dates: start: 20140531
  2. ATORVASTATIN [Concomitant]

REACTIONS (3)
  - Metrorrhagia [Unknown]
  - Medical device discomfort [Unknown]
  - Product quality issue [Unknown]
